FAERS Safety Report 21164604 (Version 2)
Quarter: 2022Q3

REPORT INFORMATION
  Report Type: Report from Study
  Country: JP (occurrence: JP)
  Receive Date: 20220803
  Receipt Date: 20220905
  Transmission Date: 20221027
  Serious: Yes (Hospitalization, Other)
  Sender: FDA-Public Use
  Company Number: JP-ABBVIE-22K-087-4482406-00

PATIENT
  Sex: Female

DRUGS (2)
  1. CARBIDOPA\LEVODOPA [Suspect]
     Active Substance: CARBIDOPA\LEVODOPA
     Indication: Parkinson^s disease
     Route: 050
     Dates: start: 20220602
  2. CARBIDOPA\LEVODOPA [Suspect]
     Active Substance: CARBIDOPA\LEVODOPA

REACTIONS (13)
  - Blindness [Unknown]
  - Altered state of consciousness [Unknown]
  - Thirst [Unknown]
  - Salivary hypersecretion [Unknown]
  - Eye haemorrhage [Unknown]
  - Gait inability [Unknown]
  - Dyspnoea [Unknown]
  - Tremor [Unknown]
  - Insomnia [Unknown]
  - Volvulus [Unknown]
  - Gastrointestinal perforation [Unknown]
  - Intestinal obstruction [Recovered/Resolved]
  - Thrombosis [Unknown]

NARRATIVE: CASE EVENT DATE: 20220101
